FAERS Safety Report 4401504-8 (Version None)
Quarter: 2004Q3

REPORT INFORMATION
  Report Type: 
  Country: None (occurrence: None)
  Receive Date: 20040719
  Receipt Date: 20040618
  Transmission Date: 20050211
  Serious: Yes (Death)
  Sender: FDA-Public Use
  Company Number: 200416252GDDC

PATIENT
  Sex: Female

DRUGS (30)
  1. ENOXAPARIN SODIUM [Suspect]
     Indication: DEEP VENOUS THROMBOSIS PROPHYLAXIS
     Route: 058
     Dates: start: 20040601, end: 20040615
  2. CEFUROXIME [Concomitant]
     Route: 042
     Dates: start: 20040601, end: 20040606
  3. CLARITHROMYCIN [Concomitant]
     Route: 042
     Dates: start: 20040601, end: 20040609
  4. ACETAMINOPHEN [Concomitant]
     Route: 048
     Dates: start: 20040601, end: 20040603
  5. IBUPROFEN [Concomitant]
     Route: 048
     Dates: start: 20040602, end: 20040602
  6. FENTANYL [Concomitant]
     Route: 042
     Dates: start: 20040602, end: 20040615
  7. PROPOFOL [Concomitant]
     Dosage: DOSE: 1 %
     Route: 042
     Dates: start: 20040602, end: 20040605
  8. RANITIDINE [Concomitant]
     Route: 042
     Dates: start: 20040603, end: 20040609
  9. METOCLOPRAMIDE [Concomitant]
     Route: 042
     Dates: start: 20040603, end: 20040606
  10. CISATRACURIUM [Concomitant]
     Route: 042
     Dates: start: 20040603, end: 20040607
  11. POTASSIUM CHLORIDE [Concomitant]
     Route: 042
     Dates: start: 20040603, end: 20040604
  12. NORADRENALINE [Concomitant]
     Route: 042
     Dates: start: 20040604, end: 20040615
  13. HYDROCORTISONE [Concomitant]
     Route: 042
     Dates: start: 20040605, end: 20040606
  14. LACTULOSE [Concomitant]
     Dosage: DOSE: 15 MLS
     Dates: start: 20040605, end: 20040609
  15. SENNA [Concomitant]
     Dates: start: 20040605, end: 20040609
  16. MIDAZOLAM [Concomitant]
     Dosage: DOSE: 1 MG/1ML
     Route: 042
     Dates: start: 20040605, end: 20040615
  17. ACETAMINOPHEN [Concomitant]
     Dates: start: 20040605, end: 20040608
  18. ALBUTEROL SULFATE [Concomitant]
     Dates: start: 20040606, end: 20040609
  19. IPRATROPIUM BROMIDE [Concomitant]
     Dates: start: 20040606, end: 20040609
  20. HYDROCORTISONE [Concomitant]
     Route: 042
     Dates: start: 20040606, end: 20040609
  21. AMINOPHYLLINE [Concomitant]
     Route: 042
     Dates: start: 20040606, end: 20040609
  22. CLOTRIMAZOLE [Concomitant]
     Dates: start: 20040606, end: 20040606
  23. POTASSIUM CHLORIDE [Concomitant]
     Route: 042
     Dates: start: 20040607, end: 20040609
  24. CISATRACURIUM [Concomitant]
     Route: 042
     Dates: start: 20040608, end: 20040615
  25. ACETYLCYSTEINE [Concomitant]
     Dates: start: 20040608, end: 20040609
  26. TEICOPLANIN [Concomitant]
     Route: 042
     Dates: start: 20040611, end: 20040615
  27. CIPROFLOXACIN [Concomitant]
     Route: 042
     Dates: start: 20040611, end: 20040615
  28. SENNA [Concomitant]
     Dates: start: 20040612, end: 20040615
  29. LACTULOSE [Concomitant]
     Dosage: DOSE: 20 ML
     Route: 042
     Dates: start: 20030612, end: 20040615
  30. TAZOCIN [Concomitant]
     Route: 042
     Dates: start: 20040613, end: 20040615

REACTIONS (2)
  - DRUG INEFFECTIVE [None]
  - PULMONARY EMBOLISM [None]
